FAERS Safety Report 6638323-8 (Version None)
Quarter: 2010Q1

REPORT INFORMATION
  Report Type: 
  Country: None (occurrence: None)
  Receive Date: 20100317
  Receipt Date: 20100302
  Transmission Date: 20100710
  Serious: Yes (Other)
  Sender: FDA-Public Use
  Company Number: CA-BAYER-201015420NA

PATIENT
  Sex: Male

DRUGS (2)
  1. CIPRO [Suspect]
     Indication: URINARY TRACT INFECTION
     Dosage: 2 BAGS PER DAY
     Route: 042
  2. CIPRO [Suspect]
     Dosage: TOTAL DAILY DOSE: 1000 MG  UNIT DOSE: 500 MG
     Route: 048

REACTIONS (5)
  - CONTUSION [None]
  - MYALGIA [None]
  - MYOSITIS [None]
  - RASH [None]
  - TENDON PAIN [None]
